FAERS Safety Report 9816710 (Version 1)
Quarter: 2014Q1

REPORT INFORMATION
  Report Type: Spontaneous
  Country: US (occurrence: US)
  Receive Date: 20140114
  Receipt Date: 20140114
  Transmission Date: 20141002
  Serious: No
  Sender: FDA-Public Use
  Company Number: US-ENDO PHARMACEUTICALS INC.-OXYA20130005

PATIENT
  Sex: 0

DRUGS (1)
  1. ENDOCET 10MG/325MG [Suspect]
     Indication: PAIN
     Dosage: 50/1625 MG
     Route: 048

REACTIONS (6)
  - Mood swings [Unknown]
  - Hot flush [Unknown]
  - Nausea [Unknown]
  - Pyrexia [Unknown]
  - Night sweats [Unknown]
  - Drug ineffective [Recovered/Resolved]
